FAERS Safety Report 7137840-4 (Version None)
Quarter: 2010Q4

REPORT INFORMATION
  Report Type: 
  Country: None (occurrence: None)
  Receive Date: 20101103
  Receipt Date: 20100330
  Transmission Date: 20110411
  Serious: Yes (Other)
  Sender: FDA-Public Use
  Company Number: 2010S1000178

PATIENT
  Age: 75 Year
  Sex: Female
  Weight: 100 kg

DRUGS (8)
  1. CUBICIN [Suspect]
     Indication: CELLULITIS
     Dosage: 3.5 MG/KG;Q24R; IV
     Route: 042
     Dates: start: 20100326, end: 20100330
  2. METOCLOPRAMIDE [Concomitant]
  3. FUROSEMIDE [Concomitant]
  4. LANSOPRAZOLE [Concomitant]
  5. PREDNISOLONE [Concomitant]
  6. FOLIC ACID [Concomitant]
  7. FENTANYL [Concomitant]
  8. AMITRIPTYLINE [Concomitant]

REACTIONS (2)
  - BLOOD POTASSIUM INCREASED [None]
  - RENAL IMPAIRMENT [None]
